FAERS Safety Report 22069731 (Version 1)
Quarter: 2023Q1

REPORT INFORMATION
  Report Type: Spontaneous
  Country: US (occurrence: US)
  Receive Date: 20230307
  Receipt Date: 20230307
  Transmission Date: 20230417
  Serious: No
  Sender: FDA-Public Use
  Company Number: US-AMNEAL PHARMACEUTICALS-2022-AMRX-01307

PATIENT
  Age: 73 Year
  Sex: Female

DRUGS (1)
  1. RYTARY [Suspect]
     Active Substance: CARBIDOPA\LEVODOPA
     Indication: Product used for unknown indication
     Dosage: 2 CAPSULES, 3 /DAY 6 HOURS APART AT 7AM, 1 PM AND 7PM
     Route: 048
     Dates: start: 20220502, end: 20220506

REACTIONS (6)
  - Gait disturbance [Unknown]
  - Nausea [Recovered/Resolved]
  - Confusional state [Unknown]
  - Hypersomnia [Unknown]
  - Dizziness [Unknown]
  - Product substitution issue [Unknown]

NARRATIVE: CASE EVENT DATE: 20220501
